FAERS Safety Report 4483597-5 (Version None)
Quarter: 2004Q4

REPORT INFORMATION
  Report Type: 
  Country: None (occurrence: None)
  Receive Date: 20041021
  Receipt Date: 20041008
  Transmission Date: 20050328
  Serious: Yes (Hospitalization)
  Sender: FDA-Public Use
  Company Number: F01200402564

PATIENT
  Age: 64 Year
  Sex: Male
  Weight: 81.9 kg

DRUGS (16)
  1. OXALIPLATIN - SOLUTION - 85 MG/M2 [Suspect]
     Indication: COLORECTAL CANCER
     Dosage: 85 MG/M2 Q2W - INTRAVENOUS NOS
     Route: 042
     Dates: start: 20040331, end: 20040331
  2. FLUOROURACIL [Suspect]
     Dosage: 400 MG./M2 BOLUS THEN 2400 MG /M2 AS 46 HOURS INFUSION QW2 - INTRAVENOUS NOS
     Route: 042
     Dates: start: 20040331, end: 20040402
  3. LEUCOVORIN- SOLUTION 350 MG [Suspect]
     Dosage: 350 MG Q2W - INTRAVENOUS NOS
     Route: 042
     Dates: start: 20040331, end: 20040331
  4. AVASTIN [Suspect]
     Dosage: 5 MG/KG OVER 30-90 MINUTES IV INFUSION ON DAY 1, Q2W - INTRAVENOUS NOS
     Route: 042
     Dates: start: 20040331, end: 20040331
  5. CIPROFLOXACIN [Concomitant]
  6. SODIUM CHLORIDE 0.9% [Concomitant]
  7. MILK OF MAGNESIA TAB [Concomitant]
  8. FLEET RECTAROID ENEMA [Concomitant]
  9. MAGNESIUM CITRATE [Concomitant]
  10. SENNA [Concomitant]
  11. TAMSULOSIN HYDROCHLORIDE [Concomitant]
  12. UROGESIC BLUE [Concomitant]
  13. OXYCONTIN [Concomitant]
  14. MORPHINE SULFATE [Concomitant]
  15. METOCLOPRAMIDE [Concomitant]
  16. CHLORPROMAZINE HYDROCHLORIDE [Concomitant]

REACTIONS (15)
  - CORYNEBACTERIUM INFECTION [None]
  - CULTURE WOUND POSITIVE [None]
  - ENTEROCOCCAL INFECTION [None]
  - ENTEROCUTANEOUS FISTULA [None]
  - GASTROSTOMY FAILURE [None]
  - IMPAIRED HEALING [None]
  - INTESTINAL PERFORATION [None]
  - NODULE [None]
  - POST PROCEDURAL COMPLICATION [None]
  - POSTOPERATIVE INFECTION [None]
  - POSTOPERATIVE WOUND COMPLICATION [None]
  - PROSTATIC DISORDER [None]
  - PYREXIA [None]
  - STREPTOCOCCAL INFECTION [None]
  - SUTURE RELATED COMPLICATION [None]
